FAERS Safety Report 11992741 (Version 1)
Quarter: 2016Q1

REPORT INFORMATION
  Report Type: Spontaneous
  Country: US (occurrence: US)
  Receive Date: 20160203
  Receipt Date: 20160203
  Transmission Date: 20160526
  Serious: No
  Sender: FDA-Public Use
  Company Number: US-UCBSA-2015020242

PATIENT
  Age: 20 Year
  Sex: Male
  Weight: 108.8 kg

DRUGS (2)
  1. KEPPRA [Suspect]
     Active Substance: LEVETIRACETAM
     Indication: SEIZURE
     Dosage: UNKNOWN DOSE
     Route: 048
  2. KEPPRA [Suspect]
     Active Substance: LEVETIRACETAM
     Dosage: 2500 MG, 2X/DAY (BID)
     Route: 048
     Dates: start: 2008

REACTIONS (6)
  - Upper limb fracture [Not Recovered/Not Resolved]
  - Off label use [Unknown]
  - Seizure [Recovered/Resolved]
  - Joint dislocation [Recovered/Resolved]
  - Overdose [Unknown]
  - Joint injury [Recovered/Resolved]

NARRATIVE: CASE EVENT DATE: 2008
